FAERS Safety Report 5460572-5 (Version None)
Quarter: 2007Q3

REPORT INFORMATION
  Report Type: 
  Country: None (occurrence: None)
  Receive Date: 20070919
  Receipt Date: 20070910
  Transmission Date: 20080115
  Serious: Yes (Disabling, Other)
  Sender: FDA-Public Use
  Company Number: FRWYE288211SEP07

PATIENT
  Sex: Female

DRUGS (4)
  1. TYGACIL [Suspect]
     Indication: MYCOBACTERIUM ABSCESSUS INFECTION
     Dosage: UNKNOWN DOSE TWICE DAILY
     Route: 042
     Dates: start: 20070803
  2. TYGACIL [Suspect]
     Indication: PNEUMONIA
  3. AMIKLIN [Suspect]
     Indication: MYCOBACTERIUM ABSCESSUS INFECTION
     Dosage: UNKNOWN
     Dates: start: 20070803
  4. AMIKLIN [Suspect]
     Indication: PNEUMONIA

REACTIONS (13)
  - BALANCE DISORDER [None]
  - BLOOD ALKALINE PHOSPHATASE INCREASED [None]
  - BLOOD BILIRUBIN INCREASED [None]
  - DEPRESSION [None]
  - GAMMA-GLUTAMYLTRANSFERASE INCREASED [None]
  - GASTROINTESTINAL DISORDER [None]
  - GENERAL PHYSICAL HEALTH DETERIORATION [None]
  - INTENTIONAL DRUG MISUSE [None]
  - OEDEMA PERIPHERAL [None]
  - TACHYCARDIA [None]
  - TRANSAMINASES INCREASED [None]
  - TREMOR [None]
  - VERTIGO [None]
